FAERS Safety Report 6633857-4 (Version None)
Quarter: 2010Q1

REPORT INFORMATION
  Report Type: 
  Country: None (occurrence: None)
  Receive Date: 20100315
  Receipt Date: 20100308
  Transmission Date: 20100710
  Serious: Yes (Other)
  Sender: FDA-Public Use
  Company Number: FR-TEVA-226495ISR

PATIENT
  Sex: Male

DRUGS (6)
  1. CLARITHROMYCIN [Suspect]
     Indication: BRONCHITIS
     Route: 048
     Dates: start: 20100222, end: 20100223
  2. CLARITHROMYCIN [Concomitant]
  3. SERENOA REPENS [Concomitant]
     Indication: PROSTATIC DISORDER
     Route: 048
  4. ALLOPURINOL [Concomitant]
     Indication: HYPERURICAEMIA
  5. ZOLPIDEM [Concomitant]
     Indication: INSOMNIA
     Route: 048
  6. PRAVASTATIN [Concomitant]
     Indication: HYPERCHOLESTEROLAEMIA
     Route: 048

REACTIONS (1)
  - COUGH [None]
